FAERS Safety Report 25267129 (Version 1)
Quarter: 2025Q2

REPORT INFORMATION
  Report Type: Spontaneous
  Country: US (occurrence: US)
  Receive Date: 20250505
  Receipt Date: 20250505
  Transmission Date: 20250716
  Serious: No
  Sender: AMNEAL
  Company Number: US-AMNEAL PHARMACEUTICALS-2024-AMRX-03024

PATIENT
  Age: 65 Year
  Sex: Female
  Weight: 46.712 kg

DRUGS (1)
  1. METHYLPHENIDATE HYDROCHLORIDE [Suspect]
     Active Substance: METHYLPHENIDATE HYDROCHLORIDE
     Indication: Narcolepsy
     Dosage: 20 MILLIGRAM, 4 /DAY
     Route: 048
     Dates: start: 20240725

REACTIONS (4)
  - Drug ineffective [Unknown]
  - Heart rate increased [Recovered/Resolved]
  - Product colour issue [Unknown]
  - Product substitution issue [Unknown]

NARRATIVE: CASE EVENT DATE: 20240814
